FAERS Safety Report 7704001-7 (Version None)
Quarter: 2011Q3

REPORT INFORMATION
  Report Type: 
  Country: None (occurrence: None)
  Receive Date: 20110823
  Receipt Date: 20110815
  Transmission Date: 20111222
  Serious: Yes (Other)
  Sender: FDA-Public Use
  Company Number: US-SANOFI-AVENTIS-2011SA052263

PATIENT
  Age: 66 Year
  Sex: Male

DRUGS (2)
  1. SOLOSTAR [Suspect]
     Dates: start: 20110101, end: 20110701
  2. LANTUS [Suspect]
     Route: 058
     Dates: start: 20110101, end: 20110701

REACTIONS (2)
  - JOINT STABILISATION [None]
  - BLOOD GLUCOSE INCREASED [None]
